FAERS Safety Report 20014082 (Version 1)
Quarter: 2021Q4

REPORT INFORMATION
  Report Type: Spontaneous
  Country: ES (occurrence: ES)
  Receive Date: 20211029
  Receipt Date: 20211029
  Transmission Date: 20220303
  Serious: Yes (Death, Hospitalization, Other)
  Sender: FDA-Public Use
  Company Number: ES-AMGEN-ESPSP2021164581

PATIENT
  Age: 26 Year
  Sex: Female

DRUGS (14)
  1. FILGRASTIM [Suspect]
     Active Substance: FILGRASTIM
     Indication: Prophylaxis
     Dosage: 40 MILLIGRAM
     Route: 065
  2. FILGRASTIM [Suspect]
     Active Substance: FILGRASTIM
     Indication: Acute myeloid leukaemia
  3. FLUDARABINE [Suspect]
     Active Substance: FLUDARABINE PHOSPHATE
     Indication: Acute myeloid leukaemia
     Dosage: UNK
     Route: 065
  4. IDARUBICIN [Suspect]
     Active Substance: IDARUBICIN
     Indication: Acute myeloid leukaemia
     Route: 065
  5. CYTARABINE [Suspect]
     Active Substance: CYTARABINE
     Indication: Acute myeloid leukaemia
     Dosage: HIGH DOSE
     Route: 065
  6. CYTARABINE [Suspect]
     Active Substance: CYTARABINE
     Dosage: UNK
     Route: 065
  7. AZACITIDINE [Suspect]
     Active Substance: AZACITIDINE
     Indication: Acute myeloid leukaemia
     Dosage: 75 MILLIGRAM/SQ. METER  (TWO CYCLES)
     Route: 065
  8. AZACITIDINE [Suspect]
     Active Substance: AZACITIDINE
     Dosage: UNK THIRD CYCLE
     Route: 065
  9. AZACITIDINE [Suspect]
     Active Substance: AZACITIDINE
     Dosage: 75 UNK, DAYS 1-7 OF EACH 28-DAY CYCLE
     Route: 065
  10. VENETOCLAX [Suspect]
     Active Substance: VENETOCLAX
     Indication: Acute myeloid leukaemia
     Dosage: 100 MILLIGRAM NEXT CYCLE
     Route: 065
  11. VENETOCLAX [Suspect]
     Active Substance: VENETOCLAX
     Dosage: UNK, TWO CYCLES
     Route: 065
  12. VENETOCLAX [Suspect]
     Active Substance: VENETOCLAX
     Dosage: 50 UNK, THIRD CYCLE: DOSE UP TITRATED TO 70MG
     Route: 065
  13. VENETOCLAX [Suspect]
     Active Substance: VENETOCLAX
     Dosage: 100 UNK, UP TITRATED TO 400MG
     Route: 065
  14. POSACONAZOLE [Concomitant]
     Active Substance: POSACONAZOLE
     Indication: Antifungal prophylaxis
     Dosage: UNK
     Route: 065

REACTIONS (10)
  - Multiple organ dysfunction syndrome [Fatal]
  - Bronchopulmonary aspergillosis [Unknown]
  - Graft versus host disease in skin [Unknown]
  - Acute myeloid leukaemia recurrent [Unknown]
  - Asthenia [Unknown]
  - Febrile neutropenia [Unknown]
  - Myelosuppression [Unknown]
  - Superinfection [Unknown]
  - Paronychia [Unknown]
  - Graft versus host disease in liver [Unknown]

NARRATIVE: CASE EVENT DATE: 20200101
